FAERS Safety Report 5854609-9 (Version None)
Quarter: 2008Q3

REPORT INFORMATION
  Report Type: 
  Country: None (occurrence: None)
  Receive Date: 20080822
  Receipt Date: 20071025
  Transmission Date: 20090109
  Serious: No
  Sender: FDA-Public Use
  Company Number: US-ABBOTT-07P-163-0421831-00

PATIENT
  Sex: Female
  Weight: 81.266 kg

DRUGS (12)
  1. SYNTHROID [Suspect]
     Indication: THYROID FUNCTION TEST ABNORMAL
     Route: 048
     Dates: start: 19870101, end: 20070401
  2. SYNTHROID [Suspect]
     Indication: THYROID FUNCTION TEST ABNORMAL
     Dates: start: 20070401
  3. LANTUS [Suspect]
     Indication: BLOOD GLUCOSE INCREASED
     Route: 058
     Dates: start: 20070301
  4. LANTUS [Suspect]
  5. TACTURNA [Concomitant]
     Indication: HYPERTENSION
     Route: 048
  6. DILTIAZEM HCL [Concomitant]
     Indication: HYPERTENSION
     Route: 048
     Dates: start: 20070301
  7. LOSARTAN POTASSIUM [Concomitant]
     Indication: DRUG USE FOR UNKNOWN INDICATION
     Route: 048
  8. ATORVASTATIN CALCIUM [Concomitant]
     Indication: BLOOD CHOLESTEROL INCREASED
     Route: 048
  9. METFORMIN [Concomitant]
     Indication: BLOOD GLUCOSE INCREASED
     Route: 048
  10. FLAX SEED [Concomitant]
     Indication: DRUG USE FOR UNKNOWN INDICATION
     Route: 048
  11. ACETYLSALICYLIC ACID SRT [Concomitant]
     Indication: DRUG USE FOR UNKNOWN INDICATION
     Route: 048
  12. JANUVIA [Concomitant]
     Indication: BLOOD GLUCOSE INCREASED
     Route: 048

REACTIONS (2)
  - THYROID FUNCTION TEST ABNORMAL [None]
  - WEIGHT INCREASED [None]
